FAERS Safety Report 25942040 (Version 1)
Quarter: 2025Q4

REPORT INFORMATION
  Report Type: Report from Study
  Country: US (occurrence: US)
  Receive Date: 20251020
  Receipt Date: 20251020
  Transmission Date: 20260117
  Serious: Yes (Other)
  Sender: ABBVIE
  Company Number: US-ABBVIE-6352657

PATIENT
  Age: 25 Year
  Sex: Male

DRUGS (3)
  1. SKYRIZI [Suspect]
     Active Substance: RISANKIZUMAB-RZAA
     Indication: Colitis ulcerative
     Dosage: ONE IN ONCE FREQUENCY?FIRST DOSE
     Route: 042
     Dates: start: 20250202, end: 20250202
  2. SKYRIZI [Suspect]
     Active Substance: RISANKIZUMAB-RZAA
     Indication: Colitis ulcerative
     Dosage: ONE IN ONCE FREQUENCY?SECOND DOSE
     Route: 042
     Dates: start: 20250302, end: 20250302
  3. SKYRIZI [Suspect]
     Active Substance: RISANKIZUMAB-RZAA
     Indication: Colitis ulcerative
     Dosage: ONE IN ONCE FREQUENCY?THIRD DOSE
     Route: 042
     Dates: start: 20250330, end: 20250330

REACTIONS (5)
  - Rehabilitation therapy [Unknown]
  - Gastrointestinal disorder [Recovering/Resolving]
  - Abdominal pain [Not Recovered/Not Resolved]
  - Haemorrhage [Not Recovered/Not Resolved]
  - Colitis [Unknown]

NARRATIVE: CASE EVENT DATE: 20250101
